FAERS Safety Report 6924299-2 (Version None)
Quarter: 2010Q3

REPORT INFORMATION
  Report Type: 
  Country: None (occurrence: None)
  Receive Date: 20100811
  Receipt Date: 20100811
  Transmission Date: 20110219
  Serious: Yes (Other)
  Sender: FDA-Public Use
  Company Number: None

PATIENT
  Sex: Female
  Weight: 86.1834 kg

DRUGS (2)
  1. DIAZEPAM [Suspect]
     Indication: ANXIETY
     Dosage: 1 GHS PO
     Route: 048
  2. DIAZEPAM [Suspect]
     Indication: INSOMNIA
     Dosage: 1 GHS PO
     Route: 048

REACTIONS (3)
  - INSOMNIA [None]
  - MANIA [None]
  - NAUSEA [None]
